FAERS Safety Report 5714071-3 (Version None)
Quarter: 2008Q2

REPORT INFORMATION
  Report Type: 
  Country: None (occurrence: None)
  Receive Date: 20080422
  Receipt Date: 20080422
  Transmission Date: 20081010
  Serious: Yes (Life-Threatening, Hospitalization)
  Sender: FDA-Public Use
  Company Number: None

PATIENT
  Sex: Male
  Weight: 90 kg

DRUGS (1)
  1. ADVICOR [Suspect]
     Indication: HYPERLIPIDAEMIA
     Dates: start: 20080201, end: 20080408

REACTIONS (2)
  - COAGULOPATHY [None]
  - JAUNDICE [None]
